FAERS Safety Report 22308454 (Version 1)
Quarter: 2023Q2

REPORT INFORMATION
  Report Type: Spontaneous
  Country: US (occurrence: None)
  Receive Date: 20230503
  Receipt Date: 20230503
  Transmission Date: 20230721
  Serious: Yes (Hospitalization)
  Sender: FDA-Public Use
  Company Number: None

PATIENT
  Age: 18 Year
  Sex: Female
  Weight: 58.97 kg

DRUGS (1)
  1. DIVALPROEX SODIUM [Suspect]
     Active Substance: DIVALPROEX SODIUM
     Indication: Idiopathic generalised epilepsy
     Dosage: FREQUENCY : DAILY;?
     Route: 048
     Dates: start: 20181218, end: 20190415

REACTIONS (2)
  - Seizure [None]
  - Abdominal pain [None]

NARRATIVE: CASE EVENT DATE: 20230317
